FAERS Safety Report 7559467-2 (Version None)
Quarter: 2011Q2

REPORT INFORMATION
  Report Type: 
  Country: None (occurrence: None)
  Receive Date: 20110621
  Receipt Date: 20110613
  Transmission Date: 20111010
  Serious: Yes (Hospitalization, Other)
  Sender: FDA-Public Use
  Company Number: GB-BRISTOL-MYERS SQUIBB COMPANY-14698351

PATIENT
  Age: 72 Year
  Sex: Male

DRUGS (6)
  1. WARFARIN SODIUM [Suspect]
     Indication: THROMBOSIS PROPHYLAXIS
     Dosage: INTERRUPTED ON 02JUL09,RESTARTED ON 16JUL09
     Route: 048
     Dates: start: 20081112
  2. FUROSEMIDE [Concomitant]
     Dates: start: 20090627
  3. BISOPROLOL FUMARATE [Concomitant]
     Dates: start: 20090627
  4. LISINOPRIL [Concomitant]
     Dates: start: 20090627
  5. PLACEBO [Suspect]
     Indication: THROMBOSIS PROPHYLAXIS
     Dosage: INTERRUPTED ON 02JUL09, RESTARTED ON 16JUL09
     Route: 048
     Dates: start: 20081112
  6. ROSUVASTATIN CALCIUM [Concomitant]
     Dates: start: 20090627

REACTIONS (1)
  - VENTRICULAR TACHYCARDIA [None]
